FAERS Safety Report 9868314 (Version 1)
Quarter: 2014Q1

REPORT INFORMATION
  Report Type: Report from Study
  Country: US (occurrence: US)
  Receive Date: 20140204
  Receipt Date: 20140204
  Transmission Date: 20141002
  Serious: Yes (Death)
  Sender: FDA-Public Use
  Company Number: US-SA-2014SA012518

PATIENT
  Age: 25 Year
  Sex: Male

DRUGS (9)
  1. HYDROCORTISONE [Suspect]
     Indication: PRODUCT USED FOR UNKNOWN INDICATION
     Route: 037
  2. CYTARABINE [Suspect]
     Indication: PRODUCT USED FOR UNKNOWN INDICATION
     Route: 037
  3. TOPOTECAN [Suspect]
     Indication: ACUTE LEUKAEMIA
     Dosage: DAY 0-4
     Route: 065
  4. VINORELBINE [Suspect]
     Indication: ACUTE LEUKAEMIA
     Dosage: DAY 0
     Route: 042
  5. VINORELBINE [Suspect]
     Indication: ACUTE LEUKAEMIA
     Dosage: DAY 7
     Route: 042
  6. VINORELBINE [Suspect]
     Indication: ACUTE LEUKAEMIA
     Dosage: DAY 14
     Route: 042
  7. THIOTEPA [Suspect]
     Indication: ACUTE LEUKAEMIA
     Dosage: DAY 2
     Route: 042
  8. CLOFARABINE [Suspect]
     Indication: ACUTE LEUKAEMIA
     Dosage: DAYS 3-7
     Route: 065
  9. DEXAMETHASONE [Suspect]
     Indication: PROPHYLAXIS
     Route: 065

REACTIONS (1)
  - Cardiac arrest [Fatal]
